FAERS Safety Report 20597363 (Version 2)
Quarter: 2022Q4

REPORT INFORMATION
  Report Type: Spontaneous
  Country: FR (occurrence: FR)
  Receive Date: 20220315
  Receipt Date: 20221206
  Transmission Date: 20230113
  Serious: Yes (Hospitalization)
  Sender: FDA-Public Use
  Company Number: None

PATIENT
  Age: 30 Year
  Sex: Female
  Weight: 56 kg

DRUGS (7)
  1. ONDANSETRON [Suspect]
     Active Substance: ONDANSETRON
     Indication: Nausea
     Dosage: 4 MILLIGRAM, QD (4MG1X/J) (IV DRIP)
     Route: 065
     Dates: start: 20211105, end: 20211105
  2. SUFENTANIL [Suspect]
     Active Substance: SUFENTANIL
     Indication: General anaesthesia
     Dosage: 10 MICROGRAM, QD (10?G1X/J) (IV DRIP)
     Route: 065
     Dates: start: 20211105, end: 20211105
  3. PROPOFOL [Suspect]
     Active Substance: PROPOFOL
     Indication: General anaesthesia
     Dosage: 300 MILLIGRAM, QD (300MGX/J) (IV DRIP)
     Route: 065
     Dates: start: 20211105, end: 20211105
  4. ACUPAN [Suspect]
     Active Substance: NEFOPAM HYDROCHLORIDE
     Indication: Pain
     Dosage: 20 MILLIGRAM, QD (20 MG1X/J) (IV DRIP)
     Route: 065
     Dates: start: 20211105, end: 20211105
  5. NOREPINEPHRINE\NOREPINEPHRINE BITARTRATE [Suspect]
     Active Substance: NOREPINEPHRINE\NOREPINEPHRINE BITARTRATE
     Indication: Hypotension
     Dosage: 0.3 MILLIGRAM, QH (0.3MG/H)(IV DRIP)
     Route: 065
     Dates: start: 20211105, end: 20211105
  6. EPHEDRINE [Suspect]
     Active Substance: EPHEDRINE
     Indication: Hypotension
     Dosage: 24 MILLIGRAM, QD (24MG1X/J)IV DRIP)
     Route: 065
     Dates: start: 20211105, end: 20211105
  7. DROPERIDOL [Suspect]
     Active Substance: DROPERIDOL
     Indication: Nausea
     Dosage: 1.25 MILLIGRAM, QD (1.25MGX/J) (IV DRIP)
     Route: 065
     Dates: start: 20211105, end: 20211105

REACTIONS (2)
  - Stress cardiomyopathy [Recovered/Resolved]
  - Troponin increased [Recovered/Resolved]

NARRATIVE: CASE EVENT DATE: 20211105
